FAERS Safety Report 6311154-4 (Version None)
Quarter: 2009Q3

REPORT INFORMATION
  Report Type: 
  Country: None (occurrence: None)
  Receive Date: 20090817
  Receipt Date: 20090806
  Transmission Date: 20100115
  Serious: Yes (Hospitalization)
  Sender: FDA-Public Use
  Company Number: US-JNJFOC-20090802142

PATIENT
  Sex: Male
  Weight: 43.2 kg

DRUGS (7)
  1. REMICADE [Suspect]
     Indication: INFLAMMATORY BOWEL DISEASE
     Route: 042
  2. MULTIVITAMINS WITH IRON [Concomitant]
  3. VALCYTE [Concomitant]
  4. FLORASTOR [Concomitant]
  5. FOLIC ACID [Concomitant]
  6. LEXAPRO [Concomitant]
  7. COUMADIN [Concomitant]

REACTIONS (1)
  - INFLAMMATORY BOWEL DISEASE [None]
